FAERS Safety Report 23835309 (Version 1)
Quarter: 2024Q2

REPORT INFORMATION
  Report Type: Spontaneous
  Country: US (occurrence: US)
  Receive Date: 20240509
  Receipt Date: 20240509
  Transmission Date: 20240715
  Serious: Yes (Hospitalization, Other)
  Sender: FDA-Public Use
  Company Number: US-MLMSERVICE-20240423-PI035922-00108-1

PATIENT
  Age: 20 Year
  Sex: Female

DRUGS (28)
  1. TOPAMAX [Interacting]
     Active Substance: TOPIRAMATE
     Indication: Borderline personality disorder
     Route: 048
  2. TOPAMAX [Interacting]
     Active Substance: TOPIRAMATE
     Indication: Post-traumatic stress disorder
  3. TOPAMAX [Interacting]
     Active Substance: TOPIRAMATE
     Indication: Anxiety disorder
  4. TOPAMAX [Interacting]
     Active Substance: TOPIRAMATE
     Indication: Major depression
  5. CHLORPROMAZINE [Interacting]
     Active Substance: CHLORPROMAZINE
     Indication: Major depression
     Dosage: THREE TIMES A DAY
     Route: 065
  6. CHLORPROMAZINE [Interacting]
     Active Substance: CHLORPROMAZINE
     Indication: Anxiety disorder
  7. CHLORPROMAZINE [Interacting]
     Active Substance: CHLORPROMAZINE
     Indication: Borderline personality disorder
  8. CHLORPROMAZINE [Interacting]
     Active Substance: CHLORPROMAZINE
     Indication: Post-traumatic stress disorder
  9. BUPROPION [Interacting]
     Active Substance: BUPROPION
     Indication: Major depression
     Route: 065
  10. BUPROPION [Interacting]
     Active Substance: BUPROPION
     Indication: Anxiety disorder
  11. BUPROPION [Interacting]
     Active Substance: BUPROPION
     Indication: Borderline personality disorder
  12. BUPROPION [Interacting]
     Active Substance: BUPROPION
     Indication: Post-traumatic stress disorder
  13. CLOZAPINE [Interacting]
     Active Substance: CLOZAPINE
     Indication: Major depression
     Dosage: DAILY
     Route: 065
  14. CLOZAPINE [Interacting]
     Active Substance: CLOZAPINE
     Indication: Anxiety disorder
  15. CLOZAPINE [Interacting]
     Active Substance: CLOZAPINE
     Indication: Borderline personality disorder
  16. CLOZAPINE [Interacting]
     Active Substance: CLOZAPINE
     Indication: Post-traumatic stress disorder
  17. LAMOTRIGINE [Interacting]
     Active Substance: LAMOTRIGINE
     Indication: Major depression
     Route: 065
  18. LAMOTRIGINE [Interacting]
     Active Substance: LAMOTRIGINE
     Indication: Anxiety disorder
  19. LAMOTRIGINE [Interacting]
     Active Substance: LAMOTRIGINE
     Indication: Borderline personality disorder
  20. LAMOTRIGINE [Interacting]
     Active Substance: LAMOTRIGINE
     Indication: Post-traumatic stress disorder
  21. CITALOPRAM [Concomitant]
     Active Substance: CITALOPRAM\CITALOPRAM HYDROBROMIDE
     Indication: Major depression
     Route: 065
  22. CITALOPRAM [Concomitant]
     Active Substance: CITALOPRAM\CITALOPRAM HYDROBROMIDE
     Indication: Anxiety disorder
  23. CITALOPRAM [Concomitant]
     Active Substance: CITALOPRAM\CITALOPRAM HYDROBROMIDE
     Indication: Borderline personality disorder
  24. CITALOPRAM [Concomitant]
     Active Substance: CITALOPRAM\CITALOPRAM HYDROBROMIDE
     Indication: Post-traumatic stress disorder
  25. LITHIUM [Concomitant]
     Active Substance: LITHIUM
     Indication: Borderline personality disorder
     Route: 065
  26. LITHIUM [Concomitant]
     Active Substance: LITHIUM
     Indication: Post-traumatic stress disorder
  27. LITHIUM [Concomitant]
     Active Substance: LITHIUM
     Indication: Major depression
  28. LITHIUM [Concomitant]
     Active Substance: LITHIUM
     Indication: Anxiety disorder

REACTIONS (6)
  - Agranulocytosis [Recovered/Resolved]
  - Neutropenic sepsis [Recovered/Resolved]
  - Thrombocytosis [Recovered/Resolved]
  - Anaemia [Recovered/Resolved]
  - Drug interaction [Recovered/Resolved]
  - Off label use [Unknown]
